FAERS Safety Report 5657372-X (Version None)
Quarter: 2008Q1

REPORT INFORMATION
  Report Type: 
  Country: None (occurrence: None)
  Receive Date: 20080310
  Receipt Date: 20080227
  Transmission Date: 20080703
  Serious: Yes (Other)
  Sender: FDA-Public Use
  Company Number: DK-PFIZER INC-2007090899

PATIENT
  Age: 57 Year
  Sex: Female

DRUGS (4)
  1. LYRICA [Suspect]
     Indication: INSOMNIA
     Dosage: TEXT:1 SINGLE DOSE
     Dates: start: 20070703, end: 20070703
  2. LYRICA [Suspect]
     Indication: EAR PAIN
  3. VITAMINS [Concomitant]
     Route: 048
  4. ASCORBIC ACID [Concomitant]
     Route: 048

REACTIONS (25)
  - ARTHRALGIA [None]
  - COORDINATION ABNORMAL [None]
  - CRYING [None]
  - DEPRESSED LEVEL OF CONSCIOUSNESS [None]
  - DRY MOUTH [None]
  - EYE DISCHARGE [None]
  - FATIGUE [None]
  - FEELING COLD [None]
  - GAIT DISTURBANCE [None]
  - GASTROINTESTINAL DISORDER [None]
  - HALLUCINATION [None]
  - HEADACHE [None]
  - HYPOAESTHESIA [None]
  - JOINT SWELLING [None]
  - MUSCULAR WEAKNESS [None]
  - NAUSEA [None]
  - NECK PAIN [None]
  - PAIN [None]
  - PHOTOPHOBIA [None]
  - RASH [None]
  - SOMNOLENCE [None]
  - SPEECH DISORDER [None]
  - SWOLLEN TONGUE [None]
  - VISUAL DISTURBANCE [None]
  - VOMITING [None]
